FAERS Safety Report 25646139 (Version 1)
Quarter: 2025Q3

REPORT INFORMATION
  Report Type: Spontaneous
  Country: US (occurrence: US)
  Receive Date: 20250805
  Receipt Date: 20250805
  Transmission Date: 20251021
  Serious: Yes (Other)
  Sender: DR REDDYS
  Company Number: US-DRL-USA-USA/2025/07/011687

PATIENT
  Age: 71 Year
  Sex: Male

DRUGS (8)
  1. FLUCONAZOLE [Suspect]
     Active Substance: FLUCONAZOLE
     Indication: Delusion of parasitosis
  2. DIPHENHYDRAMINE [Concomitant]
     Active Substance: DIPHENHYDRAMINE
     Indication: Delusion of parasitosis
  3. DOXEPIN [Concomitant]
     Active Substance: DOXEPIN
     Indication: Delusion of parasitosis
  4. GABAPENTIN [Concomitant]
     Active Substance: GABAPENTIN
     Indication: Delusion of parasitosis
  5. NALTREXONE [Concomitant]
     Active Substance: NALTREXONE
     Indication: Delusion of parasitosis
  6. QUETIAPINE [Concomitant]
     Active Substance: QUETIAPINE
     Indication: Delusion of parasitosis
  7. IVERMECTIN [Concomitant]
     Active Substance: IVERMECTIN
     Indication: Delusion of parasitosis
  8. ROPINIROLE [Concomitant]
     Active Substance: ROPINIROLE
     Indication: Delusion of parasitosis

REACTIONS (1)
  - Drug ineffective for unapproved indication [Unknown]
